FAERS Safety Report 4702287-4 (Version None)
Quarter: 2005Q2

REPORT INFORMATION
  Report Type: 
  Country: None (occurrence: None)
  Receive Date: 20050629
  Receipt Date: 20050609
  Transmission Date: 20051028
  Serious: Yes (Hospitalization)
  Sender: FDA-Public Use
  Company Number: NL-ABBOTT-05P-114-0302851-00

PATIENT
  Sex: Male

DRUGS (4)
  1. DEPAKENE [Suspect]
     Indication: EPILEPSY
     Route: 048
  2. CARBAMAZEPINE [Concomitant]
     Indication: EPILEPSY
     Route: 048
  3. LEVETIRACETAM [Concomitant]
     Indication: EPILEPSY
     Route: 048
  4. PHENYTOIN [Concomitant]
     Indication: EPILEPSY
     Route: 048

REACTIONS (8)
  - BLOOD LACTIC ACID INCREASED [None]
  - CONFUSIONAL STATE [None]
  - CONVULSION [None]
  - HALLUCINATION [None]
  - HEPATIC ENZYME INCREASED [None]
  - PSYCHOTIC DISORDER [None]
  - VOMITING [None]
  - WEIGHT DECREASED [None]
